FAERS Safety Report 22044375 (Version 1)
Quarter: 2023Q1

REPORT INFORMATION
  Report Type: Spontaneous
  Country: US (occurrence: None)
  Receive Date: 20230227
  Receipt Date: 20230227
  Transmission Date: 20230418
  Serious: Yes (Hospitalization)
  Sender: FDA-Public Use
  Company Number: None

PATIENT
  Sex: Female

DRUGS (3)
  1. COSENTYX [Suspect]
     Active Substance: SECUKINUMAB
     Indication: Psoriasis
     Dosage: FREQUENCY : MONTHLY;?
     Route: 058
     Dates: start: 20220609
  2. COSENTYX [Suspect]
     Active Substance: SECUKINUMAB
     Dosage: OTHER QUANTITY : 2 PENS (300 MG);?FREQUENCY : MONTHLY;?
     Route: 058
  3. STRATTERA [Concomitant]
     Active Substance: ATOMOXETINE HYDROCHLORIDE

REACTIONS (3)
  - Drug ineffective [None]
  - Surgery [None]
  - Therapy interrupted [None]
